FAERS Safety Report 21509585 (Version 1)
Quarter: 2022Q4

REPORT INFORMATION
  Report Type: Report from Study
  Country: US (occurrence: US)
  Receive Date: 20221026
  Receipt Date: 20221026
  Transmission Date: 20230113
  Serious: Yes (Hospitalization)
  Sender: FDA-Public Use
  Company Number: US-MIRM-000613

PATIENT
  Age: 2 Year
  Sex: Male

DRUGS (1)
  1. LIVMARLI [Suspect]
     Active Substance: MARALIXIBAT CHLORIDE
     Indication: Product used for unknown indication
     Route: 048

REACTIONS (4)
  - Pyrexia [Unknown]
  - Lethargy [Unknown]
  - Viral infection [Unknown]
  - Vaccination complication [Unknown]

NARRATIVE: CASE EVENT DATE: 20220814
